FAERS Safety Report 24707032 (Version 1)
Quarter: 2024Q4

REPORT INFORMATION
  Report Type: Spontaneous
  Country: GB (occurrence: GB)
  Receive Date: 20241206
  Receipt Date: 20241206
  Transmission Date: 20250115
  Serious: Yes (Other)
  Sender: ELI LILLY AND COMPANY
  Company Number: GB-MHRA-EMIS-9964-d3e53995-2639-4f62-81a0-423e5cb9d974

PATIENT
  Age: 53 Year
  Sex: Female
  Weight: 101 kg

DRUGS (3)
  1. MOUNJARO [Suspect]
     Active Substance: TIRZEPATIDE
     Indication: Type 2 diabetes mellitus
     Dosage: 5 MG, WEEKLY (1/W)
     Route: 058
     Dates: start: 20241008, end: 20241119
  2. COVID-19 VACCINE MRNA [Concomitant]
     Indication: Product used for unknown indication
     Dosage: 0.5 ML
     Route: 030
     Dates: start: 20241102
  3. ADJUVANTED QUADRIVALENT INFLUENZA VACCINE [Concomitant]
     Indication: Product used for unknown indication
     Dosage: 1 DOSAGE FORM
     Dates: start: 20241102

REACTIONS (10)
  - Dysphagia [Recovering/Resolving]
  - Somnolence [Recovering/Resolving]
  - Illness [Recovering/Resolving]
  - Feeding disorder [Recovering/Resolving]
  - Fluid intake reduced [Recovering/Resolving]
  - Diarrhoea [Recovering/Resolving]
  - Blood glucose decreased [Recovering/Resolving]
  - Vomiting [Recovering/Resolving]
  - Abdominal distension [Recovering/Resolving]
  - Abdominal pain upper [Recovering/Resolving]

NARRATIVE: CASE EVENT DATE: 20241110
